FAERS Safety Report 4465455-5 (Version None)
Quarter: 2004Q4

REPORT INFORMATION
  Report Type: 
  Country: None (occurrence: None)
  Receive Date: 20041004
  Receipt Date: 20040824
  Transmission Date: 20050328
  Serious: Yes (Other)
  Sender: FDA-Public Use
  Company Number: PHBS2004JP11314

PATIENT
  Age: 72 Year
  Sex: Male

DRUGS (4)
  1. LAMISIL [Suspect]
     Indication: NAIL TINEA
     Route: 048
     Dates: start: 20040816
  2. DEPAS [Concomitant]
     Route: 048
  3. ZYLORIC [Concomitant]
     Route: 048
  4. QVAR 40 [Concomitant]
     Dosage: 200 MG/D

REACTIONS (5)
  - HYPOAESTHESIA [None]
  - MYALGIA [None]
  - PAIN IN EXTREMITY [None]
  - SCIATICA [None]
  - SURGERY [None]
